FAERS Safety Report 4445049-8 (Version None)
Quarter: 2004Q3

REPORT INFORMATION
  Report Type: 
  Country: None (occurrence: None)
  Receive Date: 20040908
  Receipt Date: 20040908
  Transmission Date: 20050211
  Serious: Yes (Death)
  Sender: FDA-Public Use
  Company Number: None

PATIENT
  Age: 49 Year
  Sex: Female
  Weight: 59 kg

DRUGS (4)
  1. AVANDIA [Suspect]
     Indication: DIABETES MELLITUS
     Dosage: 4MG PO Q DAILY
     Route: 048
     Dates: start: 20040726, end: 20040827
  2. PLAVIX [Concomitant]
  3. ASPIRIN [Concomitant]
  4. DIOVAN [Concomitant]

REACTIONS (4)
  - CHROMATURIA [None]
  - NAUSEA [None]
  - OCULAR ICTERUS [None]
  - VOMITING [None]
